FAERS Safety Report 6575769-0 (Version None)
Quarter: 2010Q1

REPORT INFORMATION
  Report Type: 
  Country: None (occurrence: None)
  Receive Date: 20100209
  Receipt Date: 20100129
  Transmission Date: 20100710
  Serious: Yes (Hospitalization)
  Sender: FDA-Public Use
  Company Number: JP-ROCHE-621991

PATIENT
  Sex: Male
  Weight: 51 kg

DRUGS (24)
  1. TOCILIZUMAB [Suspect]
     Indication: RHEUMATOID ARTHRITIS
     Route: 041
     Dates: start: 20080904, end: 20080904
  2. TOCILIZUMAB [Suspect]
     Route: 041
     Dates: start: 20081003, end: 20081003
  3. TOCILIZUMAB [Suspect]
     Route: 041
     Dates: start: 20081031, end: 20081031
  4. TOCILIZUMAB [Suspect]
     Route: 041
     Dates: start: 20081128, end: 20081128
  5. TOCILIZUMAB [Suspect]
     Route: 041
     Dates: start: 20081226, end: 20081226
  6. TOCILIZUMAB [Suspect]
     Route: 041
     Dates: start: 20090123, end: 20090123
  7. TOCILIZUMAB [Suspect]
     Route: 041
     Dates: start: 20090220, end: 20090220
  8. TOCILIZUMAB [Suspect]
     Route: 041
     Dates: start: 20090501, end: 20090501
  9. TOCILIZUMAB [Suspect]
     Route: 041
     Dates: start: 20090529, end: 20090529
  10. TOCILIZUMAB [Suspect]
     Route: 041
     Dates: start: 20090626, end: 20090626
  11. TOCILIZUMAB [Suspect]
     Route: 041
     Dates: start: 20090904, end: 20090904
  12. HEPARIN [Suspect]
     Indication: THROMBOSIS PROPHYLAXIS
     Route: 065
     Dates: start: 20090302, end: 20090307
  13. PREDNISOLONE [Suspect]
     Indication: RHEUMATOID ARTHRITIS
     Route: 048
     Dates: start: 20070406
  14. ONEALFA [Concomitant]
     Dosage: ORAL FORMULATION (NOS)
     Route: 048
  15. PARIET [Concomitant]
     Route: 048
  16. FERROMIA [Concomitant]
     Dosage: ORAL FORMULATION (NOS)
     Route: 048
  17. MICARDIS [Concomitant]
     Route: 048
  18. BENET [Concomitant]
     Route: 048
  19. SUCRALFATE [Concomitant]
     Route: 048
  20. WARFARIN SODIUM [Concomitant]
     Dosage: DRUG NAME: WARFARIN POTASSIUM
     Route: 048
  21. CONIEL [Concomitant]
     Route: 048
  22. RIVOTRIL [Concomitant]
     Route: 048
  23. VOLTAREN [Concomitant]
     Route: 054
  24. ASPARA-CA [Concomitant]
     Route: 048

REACTIONS (4)
  - CELLULITIS [None]
  - DEEP VEIN THROMBOSIS [None]
  - PULMONARY ARTERY THROMBOSIS [None]
  - SHOCK HAEMORRHAGIC [None]
